FAERS Safety Report 4317183-4 (Version None)
Quarter: 2004Q1

REPORT INFORMATION
  Report Type: 
  Country: None (occurrence: None)
  Receive Date: 20040312
  Receipt Date: 20040303
  Transmission Date: 20041129
  Serious: Yes (Death)
  Sender: FDA-Public Use
  Company Number: 2004AP01295

PATIENT
  Age: 57 Year
  Sex: Female

DRUGS (1)
  1. IRESSA [Suspect]
     Indication: CARCINOMA
     Dosage: 250 MG DAILY PO
     Route: 048
     Dates: start: 20030707, end: 20030729

REACTIONS (4)
  - CARDIAC FAILURE [None]
  - DYSPNOEA [None]
  - INTERSTITIAL LUNG DISEASE [None]
  - PNEUMONIA [None]
